FAERS Safety Report 9346326 (Version 3)
Quarter: 2013Q3

REPORT INFORMATION
  Report Type: Report from Study
  Country: FR (occurrence: FR)
  Receive Date: 20130613
  Receipt Date: 20130708
  Transmission Date: 20140515
  Serious: Yes (Death, Hospitalization)
  Sender: FDA-Public Use
  Company Number: FR-ROCHE-1233437

PATIENT
  Age: 58 Year
  Sex: Female
  Weight: 80 kg

DRUGS (1)
  1. TRASTUZUMAB EMTANSINE [Suspect]
     Indication: BREAST CANCER
     Dosage: LAST DOSE PRIOR TO ONSET OF PLEURAL EFFUSION: 21/MAY/2013
     Route: 042
     Dates: start: 20130326

REACTIONS (1)
  - Infectious pleural effusion [Fatal]
